FAERS Safety Report 14176665 (Version 1)
Quarter: 2017Q4

REPORT INFORMATION
  Report Type: Spontaneous
  Country: US (occurrence: US)
  Receive Date: 20171109
  Receipt Date: 20171109
  Transmission Date: 20180321
  Serious: Yes (Disabling, Other)
  Sender: FDA-Public Use
  Company Number: None

PATIENT
  Sex: Female
  Weight: 63 kg

DRUGS (3)
  1. CLOBETESOL [Suspect]
     Active Substance: CLOBETASOL
     Dates: start: 20120206, end: 20140827
  2. TRIAMCINOLONE [Suspect]
     Active Substance: TRIAMCINOLONE
     Dates: start: 20120206, end: 20140827
  3. DESONIDE. [Suspect]
     Active Substance: DESONIDE
     Dates: start: 20120206, end: 20140827

REACTIONS (13)
  - Drug ineffective [None]
  - Drug dependence [None]
  - Burning sensation [None]
  - Steroid withdrawal syndrome [None]
  - Skin disorder [None]
  - Condition aggravated [None]
  - Erythema [None]
  - Fatigue [None]
  - Insomnia [None]
  - Pruritus [None]
  - Product use issue [None]
  - Oedema [None]
  - Therapy cessation [None]

NARRATIVE: CASE EVENT DATE: 20140827
